FAERS Safety Report 6857950-6 (Version None)
Quarter: 2010Q3

REPORT INFORMATION
  Report Type: 
  Country: None (occurrence: None)
  Receive Date: 20100714
  Receipt Date: 20100629
  Transmission Date: 20110219
  Serious: Yes (Hospitalization)
  Sender: FDA-Public Use
  Company Number: 2010AP001170

PATIENT
  Age: 59 Year
  Sex: Male

DRUGS (12)
  1. PREDNISOLONE [Suspect]
     Indication: KIDNEY TRANSPLANT REJECTION
     Dosage: 10 MG; QD,  15 MG; PO;QD, 25 MG; QD; PO
     Route: 048
     Dates: start: 20090827, end: 20090915
  2. PREDNISOLONE [Suspect]
     Indication: KIDNEY TRANSPLANT REJECTION
     Dosage: 10 MG; QD,  15 MG; PO;QD, 25 MG; QD; PO
     Route: 048
     Dates: start: 20090916, end: 20090916
  3. PREDNISOLONE [Suspect]
     Indication: KIDNEY TRANSPLANT REJECTION
     Dosage: 10 MG; QD,  15 MG; PO;QD, 25 MG; QD; PO
     Route: 048
     Dates: start: 20090917, end: 20090918
  4. PREDNISOLONE [Suspect]
     Indication: KIDNEY TRANSPLANT REJECTION
     Dosage: 10 MG; QD,  15 MG; PO;QD, 25 MG; QD; PO
     Route: 048
     Dates: start: 20090919, end: 20091126
  5. MYCOPHENOLATE MOFETIL [Suspect]
     Indication: KIDNEY TRANSPLANT REJECTION
     Dosage: 750 MG; PO;BID,1000 MG; PO;BID, 1000 MG; QD
     Route: 048
     Dates: start: 20090116, end: 20090813
  6. MYCOPHENOLATE MOFETIL [Suspect]
     Indication: KIDNEY TRANSPLANT REJECTION
     Dosage: 750 MG; PO;BID,1000 MG; PO;BID, 1000 MG; QD
     Route: 048
     Dates: start: 20090115, end: 20090915
  7. MYCOPHENOLATE MOFETIL [Suspect]
     Indication: KIDNEY TRANSPLANT REJECTION
     Dosage: 750 MG; PO;BID,1000 MG; PO;BID, 1000 MG; QD
     Route: 048
     Dates: start: 20090814
  8. CYCLOSPORINE [Suspect]
     Indication: KIDNEY TRANSPLANT REJECTION
     Dosage: 75 MG; PO;BID, 150 MG; PO;BID
     Route: 048
     Dates: start: 20090520, end: 20091012
  9. CYCLOSPORINE [Suspect]
     Indication: KIDNEY TRANSPLANT REJECTION
     Dosage: 75 MG; PO;BID, 150 MG; PO;BID
     Route: 048
     Dates: start: 20090116
  10. INSULIN ASPART (INSULIN ASPART) [Concomitant]
  11. INSULIN GLARGINE (INSULIN GLARGINE) [Concomitant]
  12. ESOMEPRAZOLE MAGNESIUM [Concomitant]

REACTIONS (3)
  - CHILLS [None]
  - CULTURE URINE POSITIVE [None]
  - PYELONEPHRITIS [None]
